FAERS Safety Report 19443095 (Version 1)
Quarter: 2021Q2

REPORT INFORMATION
  Report Type: Spontaneous
  Country: US (occurrence: US)
  Receive Date: 20210621
  Receipt Date: 20210621
  Transmission Date: 20210717
  Serious: Yes (Other)
  Sender: FDA-Public Use
  Company Number: US-HIKMA PHARMACEUTICALS USA INC.-US-H14001-21-02919

PATIENT
  Age: 62 Year
  Sex: Female

DRUGS (4)
  1. IFOSFAMIDE. [Suspect]
     Active Substance: IFOSFAMIDE
     Indication: UTERINE LEIOMYOSARCOMA
     Dosage: 1300 MG/M2
     Route: 065
  2. PACLITAXEL. [Suspect]
     Active Substance: PACLITAXEL
     Indication: UTERINE LEIOMYOSARCOMA
     Dosage: 20 MG/M2 IN 1L OF 1.5 HETASTARCH SOLUTION
     Route: 065
  3. CISPLATIN. [Suspect]
     Active Substance: CISPLATIN
     Indication: UTERINE LEIOMYOSARCOMA
     Dosage: 50 MG/M2
     Route: 065
  4. DOXORUBICIN [Suspect]
     Active Substance: DOXORUBICIN
     Indication: UTERINE LEIOMYOSARCOMA
     Dosage: 15 MG/M2
     Route: 065

REACTIONS (4)
  - Pneumonia [Unknown]
  - Portal vein thrombosis [Unknown]
  - Haemoperitoneum [Unknown]
  - Deep vein thrombosis [Unknown]
